FAERS Safety Report 14828771 (Version 2)
Quarter: 2018Q3

REPORT INFORMATION
  Report Type: Report from Study
  Country: BR (occurrence: BR)
  Receive Date: 20180430
  Receipt Date: 20180806
  Transmission Date: 20181010
  Serious: Yes (Hospitalization, Other)
  Sender: FDA-Public Use
  Company Number: BR-ELI_LILLY_AND_COMPANY-BR201804014645

PATIENT
  Age: 76 Year
  Sex: Female

DRUGS (5)
  1. CEPHALEXIN                         /00145501/ [Suspect]
     Active Substance: CEPHALEXIN
     Indication: ANTIBIOTIC THERAPY
     Dosage: 500 MG, EVERY 6 HRS
     Route: 065
  2. PANTOPRAZOLE [Concomitant]
     Active Substance: PANTOPRAZOLE
     Indication: PREMEDICATION
     Dosage: UNK, UNKNOWN
  3. VONAL [Concomitant]
     Indication: PREMEDICATION
     Dosage: UNK
     Route: 065
  4. PLASIL                             /00041901/ [Concomitant]
     Active Substance: METOCLOPRAMIDE
     Indication: PREMEDICATION
     Dosage: UNK, UNKNOWN
     Route: 065
  5. CETUXIMAB. [Suspect]
     Active Substance: CETUXIMAB
     Indication: COLORECTAL CANCER
     Dosage: UNK UNK, UNKNOWN
     Route: 065
     Dates: start: 20171228, end: 20180302

REACTIONS (6)
  - Dizziness [Unknown]
  - Diarrhoea [Unknown]
  - Dehydration [Unknown]
  - Nausea [Unknown]
  - Malignant neoplasm progression [Unknown]
  - Vomiting [Unknown]
